FAERS Safety Report 13351653 (Version 1)
Quarter: 2017Q1

REPORT INFORMATION
  Report Type: Spontaneous
  Country: IE (occurrence: IE)
  Receive Date: 20170320
  Receipt Date: 20170320
  Transmission Date: 20170429
  Serious: Yes (Other)
  Sender: FDA-Public Use
  Company Number: IE-MYLANLABS-2017M1016361

PATIENT

DRUGS (2)
  1. CLOZARIL [Suspect]
     Active Substance: CLOZAPINE
     Dosage: UNK
     Route: 048
     Dates: start: 2005
  2. CLOZARIL [Suspect]
     Active Substance: CLOZAPINE
     Indication: SCHIZOPHRENIA
     Dosage: UNK
     Route: 048
     Dates: start: 20040614

REACTIONS (5)
  - Electrocardiogram T wave inversion [Recovered/Resolved]
  - Cardiac disorder [Unknown]
  - Condition aggravated [Unknown]
  - Electrocardiogram ST segment elevation [Recovered/Resolved]
  - Polydipsia psychogenic [Unknown]

NARRATIVE: CASE EVENT DATE: 2005
